FAERS Safety Report 14581636 (Version 1)
Quarter: 2018Q1

REPORT INFORMATION
  Report Type: Spontaneous
  Country: US (occurrence: US)
  Receive Date: 20180227
  Receipt Date: 20180227
  Transmission Date: 20180509
  Serious: Yes (Hospitalization)
  Sender: FDA-Public Use
  Company Number: None

PATIENT
  Age: 25 Year
  Sex: Female

DRUGS (8)
  1. VITAMIN D3 [Concomitant]
     Active Substance: CHOLECALCIFEROL
  2. COLISTIMETHATE 150MG [Suspect]
     Active Substance: COLISTIMETHATE SODIUM
     Indication: CYSTIC FIBROSIS
     Route: 055
     Dates: start: 20171110
  3. STERILE WATER [Concomitant]
     Active Substance: WATER
  4. FLUORIDE [Concomitant]
     Active Substance: SODIUM FLUORIDE
  5. VITAMIN E [Concomitant]
     Active Substance: .ALPHA.-TOCOPHEROL
  6. SOD. CHLOR [Concomitant]
  7. TOBRAMYCIN 300MG/5ML [Suspect]
     Active Substance: TOBRAMYCIN
     Indication: CYSTIC FIBROSIS
     Dosage: 1 AMPULE EVERY 12 HOURS INHALED
     Route: 055
     Dates: start: 20131001
  8. VIT A [Concomitant]

REACTIONS (1)
  - Transfusion [None]

NARRATIVE: CASE EVENT DATE: 20180223
